FAERS Safety Report 5989042-2 (Version None)
Quarter: 2008Q4

REPORT INFORMATION
  Report Type: 
  Country: None (occurrence: None)
  Receive Date: 20081209
  Receipt Date: 20081209
  Transmission Date: 20090506
  Serious: Yes (Other)
  Sender: FDA-Public Use
  Company Number: None

PATIENT
  Age: 50 Year
  Sex: Female
  Weight: 81.6475 kg

DRUGS (12)
  1. PANTOPRAZOLE SODIUM [Suspect]
     Indication: GASTROOESOPHAGEAL REFLUX DISEASE
     Dosage: 40 MG ONCE DAILY PO
     Route: 048
     Dates: start: 20081201, end: 20081208
  2. CLARITIN-D [Concomitant]
  3. MUCINEX [Concomitant]
  4. NASONEX [Concomitant]
  5. BUPROPION HCL [Concomitant]
  6. ALPRAZOLAM [Concomitant]
  7. NEURONTIN [Concomitant]
  8. TIZANADINE [Concomitant]
  9. TRAZODONE HCL [Concomitant]
  10. FEM IRON SUPPLEMENT [Concomitant]
  11. MULTI-VITAMIN [Concomitant]
  12. LIDODERM [Concomitant]

REACTIONS (20)
  - ABDOMINAL PAIN [None]
  - AFFECT LABILITY [None]
  - ASTHENIA [None]
  - COMMUNICATION DISORDER [None]
  - CONFUSIONAL STATE [None]
  - COUGH [None]
  - DRUG INTERACTION [None]
  - FATIGUE [None]
  - FEELING ABNORMAL [None]
  - HEADACHE [None]
  - IMPAIRED DRIVING ABILITY [None]
  - INSOMNIA [None]
  - IRRITABILITY [None]
  - MALAISE [None]
  - NAUSEA [None]
  - OESOPHAGEAL SPASM [None]
  - PRESYNCOPE [None]
  - PRODUCT QUALITY ISSUE [None]
  - THINKING ABNORMAL [None]
  - WHEEZING [None]
